FAERS Safety Report 10213979 (Version 1)
Quarter: 2014Q2

REPORT INFORMATION
  Report Type: Spontaneous
  Country: JP (occurrence: JP)
  Receive Date: 20140603
  Receipt Date: 20140603
  Transmission Date: 20141212
  Serious: Yes (Hospitalization)
  Sender: FDA-Public Use
  Company Number: JP-MYLANLABS-2014S1012388

PATIENT
  Age: 48 Year
  Sex: Female

DRUGS (7)
  1. LITHIUM [Suspect]
     Indication: SCHIZOAFFECTIVE DISORDER
     Dosage: 1,200 MG/DAY
     Route: 065
  2. LITHIUM [Interacting]
     Indication: OFF LABEL USE
     Dosage: 1,200 MG/DAY
     Route: 065
  3. TELMISARTAN [Interacting]
     Indication: ESSENTIAL HYPERTENSION
     Dosage: 40 MG/DAY
     Route: 065
  4. SODIUM VALPROATE [Concomitant]
     Indication: SCHIZOAFFECTIVE DISORDER
     Dosage: 400 MG/DAY
     Route: 065
  5. OLANZAPINE [Concomitant]
     Indication: SCHIZOAFFECTIVE DISORDER
     Dosage: 20 MG/DAY
     Route: 065
  6. LEVOMEPROMAZINE [Concomitant]
     Indication: SCHIZOAFFECTIVE DISORDER
     Dosage: 5 MG/DAY
     Route: 065
  7. CLONAZEPAM [Concomitant]
     Indication: SCHIZOAFFECTIVE DISORDER
     Dosage: 2 MG/DAY
     Route: 065

REACTIONS (6)
  - Drug interaction [Unknown]
  - Toxicity to various agents [Unknown]
  - Renal failure acute [Unknown]
  - Gait disturbance [Unknown]
  - Confusional state [Unknown]
  - Dysarthria [Unknown]
